FAERS Safety Report 6816908-3 (Version None)
Quarter: 2010Q2

REPORT INFORMATION
  Report Type: 
  Country: None (occurrence: None)
  Receive Date: 20100630
  Receipt Date: 20100616
  Transmission Date: 20101027
  Serious: Yes (Death)
  Sender: FDA-Public Use
  Company Number: 1000012335

PATIENT
  Age: 47 Year
  Sex: Male
  Weight: 94 kg

DRUGS (2)
  1. CITALOPRAM (CITALOPRAM HYDROBROMIDE) [Suspect]
     Indication: SCHIZOPHRENIA, PARANOID TYPE
  2. CLOZARIL [Suspect]
     Dates: start: 20020621

REACTIONS (13)
  - ALCOHOL USE [None]
  - ARTERIOSCLEROSIS CORONARY ARTERY [None]
  - CARDIAC ARREST [None]
  - CARDIOMEGALY [None]
  - FALL [None]
  - GAIT DISTURBANCE [None]
  - HEPATIC STEATOSIS [None]
  - LEFT VENTRICULAR HYPERTROPHY [None]
  - MYOCARDIAL ISCHAEMIA [None]
  - PLEURAL ADHESION [None]
  - PULMONARY OEDEMA [None]
  - RENAL ISCHAEMIA [None]
  - VENOUS INSUFFICIENCY [None]
